FAERS Safety Report 9458721 (Version 1)
Quarter: 2013Q3

REPORT INFORMATION
  Report Type: Report from Study
  Country: US (occurrence: US)
  Receive Date: 20130814
  Receipt Date: 20130814
  Transmission Date: 20140515
  Serious: Yes (Hospitalization)
  Sender: FDA-Public Use
  Company Number: US-ALEXION-A201301771

PATIENT
  Age: 75 Year
  Sex: Male
  Weight: 63.95 kg

DRUGS (20)
  1. SOLIRIS [Suspect]
     Indication: HAEMOLYTIC URAEMIC SYNDROME
     Dosage: 900 MG, SINGLE
     Route: 042
     Dates: start: 20130529, end: 20130529
  2. SOLIRIS [Suspect]
     Dosage: 900 MG, SINGLE
     Route: 042
     Dates: start: 20130605, end: 20130605
  3. SOLIRIS [Suspect]
     Dosage: 900 MG, SINGLE
     Route: 042
     Dates: start: 20130703, end: 20130703
  4. SOLIRIS [Suspect]
     Dosage: 1200 MG, UNK
     Route: 042
     Dates: start: 20130731
  5. ALBUTEROL [Concomitant]
     Dosage: 2.5/5
  6. ALLOPURINOL [Concomitant]
     Dosage: 100 MG, QD
  7. ARICEPT [Concomitant]
     Indication: DEMENTIA
     Dosage: 10 MG, QD
  8. AZO GANTANOL [Concomitant]
     Indication: DYSURIA
     Dosage: 95 MG, QID
  9. CLOTRIMAZOLE [Concomitant]
     Indication: ORAL PAIN
     Dosage: 10 MG, PRN
  10. DILTIAZEM [Concomitant]
     Indication: HYPERTENSION
     Dosage: 60 MG, QID
  11. HYDRALAZINE [Concomitant]
     Dosage: 10 MG, Q8H, PRN
  12. LABETALOL [Concomitant]
     Dosage: 200 MG, BID, PRN
  13. LASIX [Concomitant]
     Dosage: 80 MG, QD
  14. LORAZEPAM [Concomitant]
     Dosage: 0.5 MG, QD AT HOUR OF SLEEP
  15. MEGESTROL [Concomitant]
     Indication: APPETITE DISORDER
     Dosage: 200 MG, QD
  16. OMEPRAZOLE [Concomitant]
     Dosage: 40 MG, QD
  17. PREDNISONE [Concomitant]
     Dosage: 5 MG, QD
  18. PROCARDIA XL [Concomitant]
     Dosage: 30 MG, PRN
  19. COMPAZINE [Concomitant]
     Indication: NAUSEA
     Dosage: 10 MG, QID, PRN
  20. SUCRALFATE [Concomitant]
     Dosage: 1 G, BID

REACTIONS (3)
  - Gastrointestinal haemorrhage [Recovered/Resolved]
  - Urosepsis [Recovered/Resolved]
  - Anaemia [Unknown]
